FAERS Safety Report 20834455 (Version 1)
Quarter: 2022Q2

REPORT INFORMATION
  Report Type: Spontaneous
  Country: US (occurrence: US)
  Receive Date: 20220516
  Receipt Date: 20220516
  Transmission Date: 20220720
  Serious: No
  Sender: FDA-Public Use
  Company Number: US-PFIZER INC-202200644945

PATIENT
  Age: 51 Year
  Sex: Female
  Weight: 72.109 kg

DRUGS (6)
  1. SILDENAFIL CITRATE [Suspect]
     Active Substance: SILDENAFIL CITRATE
     Dosage: UNK
  2. ORENITRAM [Suspect]
     Active Substance: TREPROSTINIL
     Indication: Pulmonary arterial hypertension
     Dosage: 2 MG, 3X/DAY
     Route: 048
  3. ORENITRAM [Suspect]
     Active Substance: TREPROSTINIL
     Dosage: UNK
     Route: 048
     Dates: start: 20220329
  4. ORENITRAM [Suspect]
     Active Substance: TREPROSTINIL
     Dosage: 1.375 MG, 3X/DAY
     Route: 048
  5. AMBRISENTAN [Concomitant]
     Active Substance: AMBRISENTAN
     Dosage: UNK
  6. DILTIAZEM [Concomitant]
     Active Substance: DILTIAZEM
     Dosage: UNK

REACTIONS (8)
  - Pain [Unknown]
  - Myalgia [Unknown]
  - Bone pain [Unknown]
  - Headache [Unknown]
  - Chest discomfort [Unknown]
  - Palpitations [Unknown]
  - Diarrhoea [Unknown]
  - Decreased appetite [Unknown]
